FAERS Safety Report 5043244-0 (Version None)
Quarter: 2006Q2

REPORT INFORMATION
  Report Type: 
  Country: None (occurrence: None)
  Receive Date: 20060627
  Receipt Date: 20060616
  Transmission Date: 20061013
  Serious: Yes (Death, Hospitalization, Other)
  Sender: FDA-Public Use
  Company Number: 2006-05-0380

PATIENT
  Age: 70 Year
  Sex: Male

DRUGS (4)
  1. TEMODAL [Suspect]
     Indication: GLIOBLASTOMA
     Dosage: 75 MG/M2 ORAL
     Route: 048
  2. RADIATION THERAPY [Suspect]
     Indication: GLIOBLASTOMA
     Dosage: 60 GRAYS/1.8 X-RAY THERA
  3. LACTULOSE [Concomitant]
  4. MEDROL [Concomitant]

REACTIONS (5)
  - CHOLESTASIS [None]
  - DYSARTHRIA [None]
  - FATIGUE [None]
  - HEMIPARESIS [None]
  - HEPATITIS TOXIC [None]
